FAERS Safety Report 7093993-8 (Version None)
Quarter: 2010Q4

REPORT INFORMATION
  Report Type: 
  Country: None (occurrence: None)
  Receive Date: 20101102
  Receipt Date: 20101101
  Transmission Date: 20110411
  Serious: Yes (Hospitalization)
  Sender: FDA-Public Use
  Company Number: AE-1110-346

PATIENT
  Age: 82 Year
  Sex: Female

DRUGS (11)
  1. LIDODERM [Suspect]
     Indication: HERPES ZOSTER
     Dosage: 3 PATCHES A DAY
  2. AVAPRO [Concomitant]
  3. PRAVACHOL [Concomitant]
  4. GABAPENTIN [Concomitant]
  5. HTZ [Concomitant]
  6. ISOSORBIDE DINITRATE [Concomitant]
  7. CORTISONE [Concomitant]
  8. BUMETANIDE [Concomitant]
  9. CALTRATE [Concomitant]
  10. POTASSIUM CHLORIDE [Concomitant]
  11. PREDNISONE [Concomitant]

REACTIONS (2)
  - ANAEMIA [None]
  - BLOOD PRESSURE DECREASED [None]
